FAERS Safety Report 17097411 (Version 1)
Quarter: 2019Q4

REPORT INFORMATION
  Report Type: Report from Study
  Country: IT (occurrence: IT)
  Receive Date: 20191202
  Receipt Date: 20191202
  Transmission Date: 20200122
  Serious: Yes (Other)
  Sender: FDA-Public Use
  Company Number: IT-MYLANLABS-2019M1116415

PATIENT
  Age: 75 Year
  Sex: Female

DRUGS (13)
  1. TALOFEN [Suspect]
     Active Substance: PROMAZINE HYDROCHLORIDE
     Indication: PSYCHOTIC DISORDER
     Dosage: 10 GTT DROPS, QD
     Route: 048
     Dates: start: 20190121, end: 20190131
  2. STILNOX [Suspect]
     Active Substance: ZOLPIDEM TARTRATE
     Dosage: 5 MILLIGRAM, QD
     Route: 048
     Dates: start: 20090128, end: 20190131
  3. QUETIAPINE. [Suspect]
     Active Substance: QUETIAPINE
     Dosage: 25 MILLIGRAM, QD
     Route: 048
     Dates: start: 20190128, end: 20190131
  4. STILNOX [Suspect]
     Active Substance: ZOLPIDEM TARTRATE
     Indication: INSOMNIA
     Dosage: 5 MILLIGRAM, QD
     Route: 048
     Dates: start: 20190121, end: 20190124
  5. DEPAKIN CHRONO                     /00228502/ [Suspect]
     Active Substance: VALPROATE SODIUM
     Dosage: 900 MILLIGRAM, QD
     Route: 048
     Dates: start: 20190124, end: 20190128
  6. QUETIAPINE. [Suspect]
     Active Substance: QUETIAPINE
     Indication: PSYCHOTIC DISORDER
     Dosage: 50 MILLIGRAM, QD
     Route: 048
     Dates: start: 20190124, end: 20190128
  7. QUETIAPINE. [Suspect]
     Active Substance: QUETIAPINE
     Dosage: 25 MILLIGRAM, QD
     Route: 048
     Dates: start: 20190121, end: 20190124
  8. CLOPIXOL                           /00876702/ [Suspect]
     Active Substance: ZUCLOPENTHIXOL ACETATE
     Indication: PSYCHOTIC DISORDER
     Dosage: 1 DOSAGE FORM, QD
     Route: 048
     Dates: start: 20190107, end: 20190121
  9. DEPAKIN CHRONO                     /00228502/ [Suspect]
     Active Substance: VALPROATE SODIUM
     Dosage: 300 MILLIGRAM, QD
     Route: 048
     Dates: start: 20190128, end: 20190131
  10. STILNOX [Suspect]
     Active Substance: ZOLPIDEM TARTRATE
     Dosage: 10 MILLIGRAM, QD
     Route: 048
     Dates: start: 20190124, end: 20190128
  11. TAVOR (LORAZEPAM) [Suspect]
     Active Substance: LORAZEPAM
     Indication: ANXIETY
     Dosage: 1 DOSAGE FORM, QD
     Route: 048
     Dates: start: 20190128, end: 20190131
  12. LEVOPRAID                          /00314301/ [Suspect]
     Active Substance: SULPIRIDE
     Indication: PSYCHOTIC DISORDER
     Dosage: 50 MILLIGRAM, QD
     Route: 048
     Dates: start: 20190124, end: 20190128
  13. DEPAKIN CHRONO                     /00228502/ [Suspect]
     Active Substance: VALPROATE SODIUM
     Indication: EPILEPSY
     Dosage: 300 MILLIGRAM, QD
     Route: 048
     Dates: start: 20190121, end: 20190124

REACTIONS (4)
  - Persecutory delusion [Recovering/Resolving]
  - Bradyphrenia [Recovering/Resolving]
  - Gait disturbance [Recovering/Resolving]
  - Dysphagia [Recovering/Resolving]

NARRATIVE: CASE EVENT DATE: 20190128
